FAERS Safety Report 24907901 (Version 1)
Quarter: 2025Q1

REPORT INFORMATION
  Report Type: Report from Study
  Country: US (occurrence: US)
  Receive Date: 20250131
  Receipt Date: 20250131
  Transmission Date: 20250409
  Serious: No
  Sender: HRA PHARMA
  Company Number: US-ORG100014127-2024000118

PATIENT
  Age: 43 Year
  Sex: Male

DRUGS (18)
  1. METOPIRONE [Suspect]
     Active Substance: METYRAPONE
     Indication: Pituitary-dependent Cushing^s syndrome
     Dosage: TAKE 2 CAPSULES 4 TIMES DAILY
     Dates: start: 20240305
  2. LYSODREN [Concomitant]
     Active Substance: MITOTANE
     Indication: Adrenal gland cancer
     Dosage: TAKE 2000MG IN THE MORNING AND 1500MG IN THE EVENING FOR 7 DAYS.
     Dates: start: 20240307
  3. LYSODREN [Concomitant]
     Active Substance: MITOTANE
     Indication: Adrenal gland cancer
     Dosage: TAKE 2000MG TWICE DAILY FOR 7 DAYS
  4. LYSODREN [Concomitant]
     Active Substance: MITOTANE
     Indication: Adrenal gland cancer
     Dosage: TAKE 2500MG IN THE MORNING AND 2000MG IN THE EVENING FOR 7 DAYS.
  5. LYSODREN [Concomitant]
     Active Substance: MITOTANE
     Indication: Adrenal gland cancer
     Dosage: TAKE 2500MG TWICE DAILY
  6. LYSODREN [Concomitant]
     Active Substance: MITOTANE
     Indication: Adrenal gland cancer
     Dosage: TAKE 2000MG TWICE DAILY
     Dates: start: 2024
  7. AMLODIPINE [Concomitant]
     Active Substance: AMLODIPINE BESYLATE
     Indication: Product used for unknown indication
  8. AMLODIPINE [Concomitant]
     Active Substance: AMLODIPINE BESYLATE
     Indication: Product used for unknown indication
  9. Aspirin tablet 81mg EC [Concomitant]
     Indication: Product used for unknown indication
  10. Calcium carbonate tablet / vitD [Concomitant]
  11. Carvedilol tablet 6.25 mg [Concomitant]
     Indication: Product used for unknown indication
  12. Eplerenone tablet 50mg [Concomitant]
     Indication: Product used for unknown indication
  13. LISINOPRIL [Concomitant]
     Active Substance: LISINOPRIL
     Indication: Product used for unknown indication
  14. Matulane capsule 50mg [Concomitant]
     Indication: Product used for unknown indication
  15. ondansetron tablet 4mg [Concomitant]
     Indication: Product used for unknown indication
  16. potassium chloride tablet 20meq er [Concomitant]
     Indication: Product used for unknown indication
  17. terazosin capsule 5mg [Concomitant]
     Indication: Product used for unknown indication
  18. Vitamin D3 capsule 5000 units [Concomitant]
     Indication: Product used for unknown indication

REACTIONS (1)
  - Off label use [Not Recovered/Not Resolved]
